FAERS Safety Report 13328736 (Version 1)
Quarter: 2017Q1

REPORT INFORMATION
  Report Type: Spontaneous
  Country: US (occurrence: US)
  Receive Date: 20170311
  Receipt Date: 20170311
  Transmission Date: 20170428
  Serious: Yes (Other)
  Sender: FDA-Public Use
  Company Number: None

PATIENT
  Age: 65 Year
  Sex: Female
  Weight: 127 kg

DRUGS (2)
  1. ZOSYN [Suspect]
     Active Substance: PIPERACILLIN SODIUM\TAZOBACTAM SODIUM
     Indication: CELLULITIS
     Route: 042
     Dates: start: 20170212, end: 20170219
  2. VANCOMYCIN [Suspect]
     Active Substance: VANCOMYCIN
     Indication: CELLULITIS
     Route: 042
     Dates: start: 20170212, end: 20170219

REACTIONS (1)
  - Renal impairment [None]

NARRATIVE: CASE EVENT DATE: 20170219
